FAERS Safety Report 10149993 (Version 1)
Quarter: 2014Q2

REPORT INFORMATION
  Report Type: Spontaneous
  Country: SE (occurrence: SE)
  Receive Date: 20140502
  Receipt Date: 20140502
  Transmission Date: 20141212
  Serious: Yes (Hospitalization)
  Sender: FDA-Public Use
  Company Number: SE-PFIZER INC-2014120122

PATIENT
  Age: 30 Year
  Sex: Female

DRUGS (1)
  1. CYTOTEC [Suspect]
     Indication: POSTPARTUM DISORDER
     Route: 048
     Dates: start: 20140418

REACTIONS (2)
  - Off label use [Unknown]
  - Blindness transient [Recovered/Resolved]
